FAERS Safety Report 9809106 (Version 2)
Quarter: 2014Q1

REPORT INFORMATION
  Report Type: Spontaneous
  Country: PL (occurrence: PL)
  Receive Date: 20140110
  Receipt Date: 20140312
  Transmission Date: 20141002
  Serious: Yes (Hospitalization)
  Sender: FDA-Public Use
  Company Number: PHHY2014PL002272

PATIENT
  Age: 85 Year
  Sex: Female

DRUGS (2)
  1. CARVEDILOL [Suspect]
     Dosage: 6.25 MG, PER DAY
  2. SOTALOL [Suspect]
     Dosage: 120 MG, PER DAY

REACTIONS (9)
  - Long QT syndrome [Unknown]
  - Electrocardiogram QT prolonged [Unknown]
  - Electrocardiogram T wave abnormal [Unknown]
  - Palpitations [Unknown]
  - Sinus bradycardia [Unknown]
  - Syncope [Unknown]
  - Torsade de pointes [Unknown]
  - Ventricular tachycardia [Unknown]
  - Wrong drug administered [Unknown]
